FAERS Safety Report 9769073 (Version 2)
Quarter: 2014Q2

REPORT INFORMATION
  Report Type: Report from Study
  Country: US (occurrence: US)
  Receive Date: 20131218
  Receipt Date: 20140514
  Transmission Date: 20141212
  Serious: Yes (Other)
  Sender: FDA-Public Use
  Company Number: US-JNJFOC-20131206540

PATIENT
  Age: 60 Year
  Sex: Female

DRUGS (6)
  1. REMICADE [Suspect]
     Indication: PRODUCT USED FOR UNKNOWN INDICATION
     Dosage: 300 (UNITS UNSPECIFIED) 6-8 WEEKS
     Route: 042
     Dates: start: 200510, end: 20131107
  2. METHOTREXATE [Concomitant]
     Indication: RHEUMATOID ARTHRITIS
     Dosage: 5-8 WEEKS
     Route: 065
     Dates: start: 1993, end: 201307
  3. CITALOPRAM HBR [Concomitant]
     Indication: HOT FLUSH
     Route: 065
     Dates: start: 2010
  4. LASTACAFT [Concomitant]
     Indication: HYPERSENSITIVITY
     Dosage: FOR 7 YEARS
     Route: 065
  5. LEVOCETIRIZINE [Concomitant]
     Indication: HYPERSENSITIVITY
     Dosage: FOR 7 YEARS
     Route: 065
  6. RANITIDINE [Concomitant]
     Indication: HYPERSENSITIVITY
     Dosage: FOR 7 YEARS
     Route: 065

REACTIONS (1)
  - B-cell lymphoma [Not Recovered/Not Resolved]
